FAERS Safety Report 6173841-0 (Version None)
Quarter: 2009Q2

REPORT INFORMATION
  Report Type: 
  Country: None (occurrence: None)
  Receive Date: 20090429
  Receipt Date: 20090429
  Transmission Date: 20091009
  Serious: Yes (Hospitalization)
  Sender: FDA-Public Use
  Company Number: None

PATIENT
  Age: 55 Year
  Sex: Female
  Weight: 108.8633 kg

DRUGS (2)
  1. CEFDINIR [Suspect]
     Indication: LOCALISED INFECTION
     Dosage: 300MG TWICE DAILY ORAL  (5 DAYS FIRST TIME, 1 DOSE 2ND USE)
     Route: 048
  2. CEFDINIR [Suspect]
     Indication: SINUSITIS
     Dosage: 300MG TWICE DAILY ORAL  (5 DAYS FIRST TIME, 1 DOSE 2ND USE)
     Route: 048

REACTIONS (10)
  - BLOOD PRESSURE INCREASED [None]
  - DYSPEPSIA [None]
  - ERYTHEMA [None]
  - HEART RATE INCREASED [None]
  - NAIL INFECTION [None]
  - OEDEMA PERIPHERAL [None]
  - TREMOR [None]
  - URTICARIA [None]
  - VAGINAL DISCHARGE [None]
  - VULVOVAGINAL PRURITUS [None]
